FAERS Safety Report 23597108 (Version 1)
Quarter: 2024Q1

REPORT INFORMATION
  Report Type: Spontaneous
  Country: US (occurrence: US)
  Receive Date: 20240305
  Receipt Date: 20240305
  Transmission Date: 20240410
  Serious: No
  Sender: FDA-Public Use
  Company Number: US-SANDOZ-SDZ2024US023100

PATIENT
  Sex: Female

DRUGS (1)
  1. TROPICAMIDE [Suspect]
     Active Substance: TROPICAMIDE
     Indication: Product used for unknown indication
     Dosage: 15 ML, ONCE 6 DROPS IN RIGHT EYE
     Route: 065
     Dates: start: 20240215, end: 20240215

REACTIONS (3)
  - Eye irritation [Unknown]
  - Vision blurred [Not Recovered/Not Resolved]
  - Mydriasis [Unknown]
